FAERS Safety Report 7789584-3 (Version None)
Quarter: 2011Q3

REPORT INFORMATION
  Report Type: 
  Country: None (occurrence: None)
  Receive Date: 20110930
  Receipt Date: 20110923
  Transmission Date: 20111222
  Serious: Yes (Death)
  Sender: FDA-Public Use
  Company Number: GB-JNJFOC-20110906642

PATIENT
  Age: 20 Year
  Sex: Male

DRUGS (7)
  1. TRICYCLIC ANTIDEPRESSANT [Suspect]
     Indication: PRODUCT USED FOR UNKNOWN INDICATION
  2. LOPERAMIDE HCL [Suspect]
     Indication: PRODUCT USED FOR UNKNOWN INDICATION
  3. IRON [Suspect]
     Indication: PRODUCT USED FOR UNKNOWN INDICATION
  4. AMOXICILLIN [Suspect]
     Indication: PRODUCT USED FOR UNKNOWN INDICATION
  5. ACETAMINOPHEN [Suspect]
  6. ACETAMINOPHEN [Suspect]
     Indication: PRODUCT USED FOR UNKNOWN INDICATION
  7. ERYTHROMYCIN [Suspect]
     Indication: PRODUCT USED FOR UNKNOWN INDICATION

REACTIONS (2)
  - MULTIPLE DRUG OVERDOSE [None]
  - HEPATIC NECROSIS [None]
